FAERS Safety Report 5643478-8 (Version None)
Quarter: 2008Q1

REPORT INFORMATION
  Report Type: 
  Country: None (occurrence: None)
  Receive Date: 20080228
  Receipt Date: 20080222
  Transmission Date: 20080703
  Serious: Yes (Hospitalization)
  Sender: FDA-Public Use
  Company Number: US-PFIZER INC-2008016755

PATIENT
  Sex: Male
  Weight: 107 kg

DRUGS (5)
  1. LIPITOR [Suspect]
     Indication: HYPERLIPIDAEMIA
     Route: 048
  2. LISINOPRIL [Concomitant]
  3. LEVOTHYROXINE SODIUM [Concomitant]
     Dosage: TEXT:175 MCG
  4. PLAVIX [Concomitant]
  5. ACETYLSALICYLIC ACID [Concomitant]
     Dosage: TEXT:81 MG-FREQ:DAILY

REACTIONS (2)
  - CHROMATURIA [None]
  - INTENTIONAL OVERDOSE [None]
